FAERS Safety Report 8820415 (Version 1)
Quarter: 2012Q4

REPORT INFORMATION
  Report Type: 
  Country: US (occurrence: US)
  Receive Date: 20121002
  Receipt Date: 20121002
  Transmission Date: 20130627
  Serious: Yes (Other)
  Sender: FDA-Public Use
  Company Number: US-ACCORD-014733

PATIENT
  Age: 8 Year
  Sex: Female

DRUGS (3)
  1. MYCOPHENOLATE MOFETIL [Suspect]
     Indication: RENAL TRANSPLANT
  2. DACLIZUMAB [Concomitant]
     Indication: RENAL TRANSPLANT
  3. TACROLIMUS [Concomitant]
     Indication: RENAL TRANSPLANT

REACTIONS (5)
  - Skin papilloma [Recovered/Resolved]
  - Epstein-Barr viraemia [Unknown]
  - Kidney transplant rejection [Recovered/Resolved]
  - Emotional distress [None]
  - Blister [None]
